FAERS Safety Report 7386122-4 (Version None)
Quarter: 2011Q1

REPORT INFORMATION
  Report Type: 
  Country: None (occurrence: None)
  Receive Date: 20110329
  Receipt Date: 20110329
  Transmission Date: 20110831
  Serious: Yes (Death)
  Sender: FDA-Public Use
  Company Number: None

PATIENT
  Age: 85 Year
  Sex: Female

DRUGS (15)
  1. TRAZODONE [Concomitant]
  2. QVAR 40 [Concomitant]
  3. ACETAMINOPHEN [Concomitant]
  4. WARFARIN [Concomitant]
  5. METOPROLOL TARTRATE [Concomitant]
  6. FUROSEMIDE [Concomitant]
  7. FEROSUL [Concomitant]
  8. DOCUSATE [Concomitant]
  9. BISACODYL [Concomitant]
  10. SPIRIVA [Concomitant]
  11. PROAIR HFA [Concomitant]
  12. REVLIMID [Suspect]
     Indication: AMYLOIDOSIS
     Dosage: REVLIMID 15 MG DAILY ORALLY
     Route: 048
     Dates: start: 20110131, end: 20110220
  13. REVLIMID [Suspect]
     Indication: MULTIPLE MYELOMA
     Dosage: REVLIMID 15 MG DAILY ORALLY
     Route: 048
     Dates: start: 20110131, end: 20110220
  14. LEVOTHROID [Concomitant]
  15. SENNA [Concomitant]

REACTIONS (5)
  - FEMORAL NECK FRACTURE [None]
  - INTERNATIONAL NORMALISED RATIO DECREASED [None]
  - CEREBROVASCULAR ACCIDENT [None]
  - ATRIAL FIBRILLATION [None]
  - CHRONIC OBSTRUCTIVE PULMONARY DISEASE [None]
